FAERS Safety Report 16957223 (Version 2)
Quarter: 2019Q4

REPORT INFORMATION
  Report Type: Spontaneous
  Country: PT (occurrence: PT)
  Receive Date: 20191024
  Receipt Date: 20191212
  Transmission Date: 20200122
  Serious: Yes (Hospitalization, Other)
  Sender: FDA-Public Use
  Company Number: NVSC2019PT013609

PATIENT
  Age: 17 Year
  Sex: Female

DRUGS (3)
  1. CARBAMAZEPINE. [Suspect]
     Active Substance: CARBAMAZEPINE
     Indication: GENERALISED TONIC-CLONIC SEIZURE
     Dosage: UNK
     Route: 065
  2. ANTIHISTAMINES [Concomitant]
     Active Substance: ANTIHISTAMINES NOS
     Indication: VIRAL RASH
     Dosage: UNK
     Route: 048
  3. ANTIHISTAMINES [Concomitant]
     Active Substance: ANTIHISTAMINES NOS
     Indication: URTICARIA

REACTIONS (14)
  - Transaminases increased [Recovering/Resolving]
  - Drug reaction with eosinophilia and systemic symptoms [Recovering/Resolving]
  - Rash erythematous [Recovering/Resolving]
  - Rash papular [Recovering/Resolving]
  - Rash pruritic [Recovering/Resolving]
  - Odynophagia [Recovering/Resolving]
  - Angioedema [Recovering/Resolving]
  - Lymphadenopathy [Recovering/Resolving]
  - Liver function test increased [Recovering/Resolving]
  - Eosinophil count increased [Recovering/Resolving]
  - Hyperaemia [Recovering/Resolving]
  - Condition aggravated [Recovering/Resolving]
  - Pyrexia [Recovering/Resolving]
  - Gamma-glutamyltransferase increased [Recovering/Resolving]
